FAERS Safety Report 8812682 (Version 4)
Quarter: 2013Q2

REPORT INFORMATION
  Report Type: Spontaneous
  Country: IE (occurrence: IE)
  Receive Date: 20120927
  Receipt Date: 20130530
  Transmission Date: 20140414
  Serious: Yes (Hospitalization)
  Sender: FDA-Public Use
  Company Number: IE-B.I. PHARMACEUTICALS,INC./RIDGEFIELD-2012-UK-01243UK

PATIENT
  Sex: Female

DRUGS (9)
  1. TRAJENTA [Suspect]
     Indication: TYPE 2 DIABETES MELLITUS
     Dosage: 5 MG
     Route: 048
     Dates: end: 20120910
  2. LEVEMIR [Concomitant]
     Indication: DIABETES MELLITUS
     Dosage: 45 IU MANE, 20 IU NOCTE
     Route: 058
  3. NARDIL [Concomitant]
     Dosage: 15 MG
     Route: 048
  4. STILNOCT [Concomitant]
     Dosage: 5 MG
     Route: 048
  5. AMLODIPINE [Concomitant]
     Dosage: 10 MG
     Route: 048
  6. LIPOSTAT [Concomitant]
     Dosage: 10 MG
     Route: 048
  7. RAMIPRIL [Concomitant]
     Dosage: 2.5 MG
     Route: 048
  8. XYZAL [Concomitant]
     Dosage: 5 MG
     Route: 048
  9. TAMOXIFEN [Concomitant]
     Dosage: 20 MG
     Route: 048

REACTIONS (4)
  - Renal failure acute [Unknown]
  - Pemphigoid [Unknown]
  - Rash [Unknown]
  - Pseudomonas infection [Unknown]
